FAERS Safety Report 5023826-2 (Version None)
Quarter: 2006Q2

REPORT INFORMATION
  Report Type: 
  Country: None (occurrence: None)
  Receive Date: 20060606
  Receipt Date: 20060531
  Transmission Date: 20061013
  Serious: Yes (Hospitalization, Other)
  Sender: FDA-Public Use
  Company Number: ITWYE774227JUN05

PATIENT
  Age: 50 Year
  Sex: Male

DRUGS (1)
  1. SIROLIMUS [Suspect]
     Indication: PROPHYLAXIS AGAINST TRANSPLANT REJECTION
     Dosage: 1 MG 1X PER 1 DAY ORAL
     Route: 048
     Dates: start: 20050531

REACTIONS (2)
  - HYDROCELE [None]
  - LYMPHOCELE [None]
